FAERS Safety Report 8613160-3 (Version None)
Quarter: 2012Q3

REPORT INFORMATION
  Report Type: 
  Country: None (occurrence: None)
  Receive Date: 20120822
  Receipt Date: 20120717
  Transmission Date: 20120928
  Serious: No
  Sender: FDA-Public Use
  Company Number: US-009507513-1207USA007650

PATIENT

DRUGS (4)
  1. PROAIR (ALBUTEROL SULFATE) [Concomitant]
  2. DULERA [Suspect]
     Indication: CHRONIC OBSTRUCTIVE PULMONARY DISEASE
     Dosage: 2 DF, BID
     Route: 055
     Dates: start: 20120702
  3. LISINOPRIL [Concomitant]
  4. LEVOTHROID [Concomitant]

REACTIONS (1)
  - FATIGUE [None]
